FAERS Safety Report 8505891-0 (Version None)
Quarter: 2012Q3

REPORT INFORMATION
  Report Type: 
  Country: None (occurrence: None)
  Receive Date: 20120706
  Receipt Date: 20120706
  Transmission Date: 20120928
  Serious: Yes (Hospitalization)
  Sender: FDA-Public Use
  Company Number: None

PATIENT
  Age: 49 Year
  Sex: Female
  Weight: 77.6558 kg

DRUGS (1)
  1. VORINOSTAT [Suspect]
     Indication: PANCREATIC CARCINOMA
     Dosage: 400 MG ORAL DAILY M-F
     Route: 048
     Dates: start: 20120521, end: 20120618

REACTIONS (5)
  - NAUSEA [None]
  - VOMITING [None]
  - PYREXIA [None]
  - ABDOMINAL PAIN UPPER [None]
  - CHOLANGITIS [None]
